FAERS Safety Report 8130679-2 (Version None)
Quarter: 2012Q1

REPORT INFORMATION
  Report Type: 
  Country: None (occurrence: None)
  Receive Date: 20120213
  Receipt Date: 20120201
  Transmission Date: 20120608
  Serious: No
  Sender: FDA-Public Use
  Company Number: US-BIOGENIDEC-2012BI002671

PATIENT
  Age: 33 Year
  Sex: Female

DRUGS (1)
  1. TYSABRI [Suspect]
     Indication: MULTIPLE SCLEROSIS
     Route: 042
     Dates: start: 20111219

REACTIONS (9)
  - LIP SWELLING [None]
  - URTICARIA [None]
  - HYPOAESTHESIA [None]
  - CHEST PAIN [None]
  - DYSPNOEA [None]
  - SWELLING FACE [None]
  - FEELING HOT [None]
  - AURICULAR SWELLING [None]
  - EYE SWELLING [None]
